FAERS Safety Report 6714122-3 (Version None)
Quarter: 2010Q2

REPORT INFORMATION
  Report Type: 
  Country: None (occurrence: None)
  Receive Date: 20100506
  Receipt Date: 20100423
  Transmission Date: 20101027
  Serious: Yes (Hospitalization)
  Sender: FDA-Public Use
  Company Number: FR-JNJFOC-20100501083

PATIENT
  Sex: Female

DRUGS (7)
  1. IXPRIM [Suspect]
     Indication: PAIN
     Dosage: 3 TABLETS DAILY
     Route: 048
  2. PERFALGAN [Suspect]
     Indication: PAIN
     Dosage: 3 IN 1 DAY
     Route: 042
  3. AUGMENTIN '125' [Suspect]
     Indication: DRUG USE FOR UNKNOWN INDICATION
     Dosage: 2 IN 1 DAY
     Route: 048
  4. PLAVIX [Concomitant]
     Dosage: DAILY
  5. LEXOMIL [Concomitant]
     Dosage: THREE TIMES DAILY
  6. CARDENSIEL [Concomitant]
     Dosage: DAILY
  7. FLUVASTATIN [Concomitant]
     Dosage: DAILY

REACTIONS (1)
  - CYTOLYTIC HEPATITIS [None]
